FAERS Safety Report 5324192-5 (Version None)
Quarter: 2007Q2

REPORT INFORMATION
  Report Type: 
  Country: None (occurrence: None)
  Receive Date: 20070507
  Receipt Date: 20070420
  Transmission Date: 20071010
  Serious: Yes (Hospitalization, Disabling)
  Sender: FDA-Public Use
  Company Number: DSA_29822_2007

PATIENT
  Age: 59 Year

DRUGS (2)
  1. ENALAPRIL MALEATE (ENALAPRIL MALEATE) 10 MG [Suspect]
     Dosage: 10 MG QD ORAL
     Route: 048
     Dates: start: 20060101, end: 20060301
  2. METOPROLOL TARTRATE [Concomitant]

REACTIONS (2)
  - GASTROINTESTINAL OEDEMA [None]
  - SUBILEUS [None]
